FAERS Safety Report 8600461-8 (Version None)
Quarter: 2012Q3

REPORT INFORMATION
  Report Type: 
  Country: None (occurrence: None)
  Receive Date: 20120817
  Receipt Date: 20120810
  Transmission Date: 20120928
  Serious: Yes (Hospitalization)
  Sender: FDA-Public Use
  Company Number: CO-ELI_LILLY_AND_COMPANY-CO201208004083

PATIENT
  Age: 55 Year
  Sex: Female

DRUGS (3)
  1. ZYPREXA [Suspect]
     Dosage: 10 MG, QD
  2. ZYPREXA [Suspect]
     Indication: BIPOLAR DISORDER
     Dosage: 5 MG, QD
     Dates: start: 20120701
  3. DIVALPROEX SODIUM [Concomitant]
     Dosage: 1000 MG, UNK

REACTIONS (3)
  - CUSHING'S SYNDROME [None]
  - OEDEMA PERIPHERAL [None]
  - METABOLIC SYNDROME [None]
